FAERS Safety Report 5573608-8 (Version None)
Quarter: 2007Q4

REPORT INFORMATION
  Report Type: 
  Country: None (occurrence: None)
  Receive Date: 20071226
  Receipt Date: 20071220
  Transmission Date: 20080405
  Serious: Yes (Other)
  Sender: FDA-Public Use
  Company Number: AU-AVENTIS-200721658GDDC

PATIENT
  Age: 72 Year
  Sex: Male

DRUGS (2)
  1. LANTUS [Suspect]
     Route: 058
     Dates: start: 20060901
  2. AUTOPEN INSULIN INJECTION PEN [Suspect]

REACTIONS (3)
  - CORONARY ARTERY BYPASS [None]
  - HYPOGLYCAEMIA [None]
  - MUSCLE SPASMS [None]
